FAERS Safety Report 17047808 (Version 1)
Quarter: 2019Q4

REPORT INFORMATION
  Report Type: Spontaneous
  Country: SE (occurrence: SE)
  Receive Date: 20191119
  Receipt Date: 20191119
  Transmission Date: 20200122
  Serious: Yes (Hospitalization)
  Sender: FDA-Public Use
  Company Number: SE-TAKEDA-2019TUS065531

PATIENT
  Age: 28 Year
  Sex: Male
  Weight: 80 kg

DRUGS (2)
  1. BRINTELLIX [Suspect]
     Active Substance: VORTIOXETINE HYDROBROMIDE
     Indication: PANIC ATTACK
     Dosage: 10 MILLIGRAM
     Route: 048
     Dates: start: 20190917
  2. BRINTELLIX [Suspect]
     Active Substance: VORTIOXETINE HYDROBROMIDE
     Indication: ANXIETY

REACTIONS (7)
  - Derealisation [Not Recovered/Not Resolved]
  - Insomnia [Not Recovered/Not Resolved]
  - Formication [Not Recovered/Not Resolved]
  - Product use in unapproved indication [Unknown]
  - Muscle spasms [Not Recovered/Not Resolved]
  - Anxiety [Not Recovered/Not Resolved]
  - Restlessness [Not Recovered/Not Resolved]

NARRATIVE: CASE EVENT DATE: 20190920
